FAERS Safety Report 21555615 (Version 2)
Quarter: 2022Q4

REPORT INFORMATION
  Report Type: Spontaneous
  Country: CN (occurrence: CN)
  Receive Date: 20221104
  Receipt Date: 20221205
  Transmission Date: 20230112
  Serious: Yes (Death, Other)
  Sender: FDA-Public Use
  Company Number: CN-ABBVIE-4187207

PATIENT

DRUGS (3)
  1. VENETOCLAX [Suspect]
     Active Substance: VENETOCLAX
     Indication: Acute myeloid leukaemia
     Dosage: DAY 1
     Route: 048
  2. VENETOCLAX [Suspect]
     Active Substance: VENETOCLAX
     Indication: Acute myeloid leukaemia
     Route: 048
  3. VENETOCLAX [Suspect]
     Active Substance: VENETOCLAX
     Indication: Acute myeloid leukaemia
     Dosage: D3 TO 28
     Route: 048

REACTIONS (12)
  - Disease recurrence [Fatal]
  - Neutrophil count decreased [Recovering/Resolving]
  - Sepsis [Fatal]
  - White blood cell count decreased [Recovering/Resolving]
  - Pyrexia [Recovering/Resolving]
  - Hepatic failure [Recovering/Resolving]
  - Disease progression [Fatal]
  - Cerebral haemorrhage [Fatal]
  - Nausea [Recovering/Resolving]
  - Platelet count decreased [Recovering/Resolving]
  - Myelosuppression [Fatal]
  - Infection [Recovering/Resolving]
